FAERS Safety Report 13926544 (Version 1)
Quarter: 2017Q3

REPORT INFORMATION
  Report Type: Spontaneous
  Country: US (occurrence: None)
  Receive Date: 20170831
  Receipt Date: 20170831
  Transmission Date: 20171127
  Serious: Yes (Death)
  Sender: FDA-Public Use
  Company Number: None

PATIENT
  Age: 1 Year
  Sex: Male
  Weight: 8.4 kg

DRUGS (7)
  1. METHOTREXATE. [Suspect]
     Active Substance: METHOTREXATE
     Dates: end: 20170814
  2. HYDROCORTISONE. [Suspect]
     Active Substance: HYDROCORTISONE
     Dates: end: 20170814
  3. VINCRISTINE SULFATE. [Suspect]
     Active Substance: VINCRISTINE SULFATE
     Dates: end: 20170821
  4. MITOXANTRONE HYDROCHLORIDE. [Suspect]
     Active Substance: MITOXANTRONE HYDROCHLORIDE
     Dates: end: 20170801
  5. CYTARABINE. [Suspect]
     Active Substance: CYTARABINE
     Dates: end: 20170814
  6. DEXAMETHASONE. [Suspect]
     Active Substance: DEXAMETHASONE
     Dates: end: 20170819
  7. ONCASPAR [Suspect]
     Active Substance: PEGASPARGASE
     Dates: end: 20170816

REACTIONS (7)
  - Oedema [None]
  - Cellulitis [None]
  - Pancytopenia [None]
  - Blood culture positive [None]
  - Febrile neutropenia [None]
  - Irritability [None]
  - Tachycardia [None]

NARRATIVE: CASE EVENT DATE: 20170818
